FAERS Safety Report 18320888 (Version 2)
Quarter: 2020Q3

REPORT INFORMATION
  Report Type: Report from Study
  Country: CA (occurrence: CA)
  Receive Date: 20200928
  Receipt Date: 20200928
  Transmission Date: 20201103
  Serious: Yes (Other)
  Sender: FDA-Public Use
  Company Number: CA-JNJFOC-20200929343

PATIENT
  Age: 47 Year
  Sex: Female
  Weight: 92 kg

DRUGS (1)
  1. REMICADE [Suspect]
     Active Substance: INFLIXIMAB
     Indication: CROHN^S DISEASE
     Route: 042
     Dates: start: 20040101

REACTIONS (6)
  - Crohn^s disease [Recovering/Resolving]
  - Systemic lupus erythematosus [Unknown]
  - Depression [Unknown]
  - Stress [Unknown]
  - Pulmonary mass [Unknown]
  - Renal cyst [Unknown]

NARRATIVE: CASE EVENT DATE: 20200913
